FAERS Safety Report 8409861-2 (Version None)
Quarter: 2012Q2

REPORT INFORMATION
  Report Type: 
  Country: None (occurrence: None)
  Receive Date: 20120605
  Receipt Date: 20120531
  Transmission Date: 20120825
  Serious: No
  Sender: FDA-Public Use
  Company Number: US-PFIZER INC-2012132262

PATIENT
  Sex: Female

DRUGS (1)
  1. LYRICA [Suspect]
     Indication: PAIN
     Dosage: UNK

REACTIONS (5)
  - DIZZINESS [None]
  - PAIN [None]
  - FEELING ABNORMAL [None]
  - WEIGHT INCREASED [None]
  - VISUAL IMPAIRMENT [None]
